FAERS Safety Report 4776503-7 (Version None)
Quarter: 2005Q3

REPORT INFORMATION
  Report Type: 
  Country: None (occurrence: None)
  Receive Date: 20050915
  Receipt Date: 20050909
  Transmission Date: 20060218
  Serious: Yes (Death, Other)
  Sender: FDA-Public Use
  Company Number: 2005014808

PATIENT
  Age: 90 Year
  Sex: Female

DRUGS (1)
  1. BEXTRA [Suspect]
     Indication: PAIN
     Dosage: (40 MG), INTRAMUSCULAR
     Route: 030
     Dates: start: 20041203, end: 20041203

REACTIONS (1)
  - DEATH [None]
